FAERS Safety Report 6794843-7 (Version None)
Quarter: 2010Q2

REPORT INFORMATION
  Report Type: 
  Country: None (occurrence: None)
  Receive Date: 20100624
  Receipt Date: 20100624
  Transmission Date: 20101027
  Serious: No
  Sender: FDA-Public Use
  Company Number: None

PATIENT
  Sex: Male
  Weight: 91.173 kg

DRUGS (1)
  1. ACETAMINOPHEN [Suspect]
     Indication: BACK PAIN
     Dosage: 325MG APPROX 2 PER DAY ORAL - *AHA070
     Route: 048
     Dates: start: 20100301, end: 20100401

REACTIONS (6)
  - GASTRIC DISORDER [None]
  - HEADACHE [None]
  - NAUSEA [None]
  - PRODUCT CONTAMINATION [None]
  - PRODUCT QUALITY ISSUE [None]
  - VOMITING [None]
